FAERS Safety Report 7586319-4 (Version None)
Quarter: 2011Q3

REPORT INFORMATION
  Report Type: 
  Country: None (occurrence: None)
  Receive Date: 20110701
  Receipt Date: 20110627
  Transmission Date: 20111222
  Serious: Yes (Hospitalization)
  Sender: FDA-Public Use
  Company Number: DE-ABBOTT-11P-062-0723217-00

PATIENT
  Weight: 83 kg

DRUGS (3)
  1. COTRIM [Concomitant]
     Indication: PNEUMOCYSTIS JIROVECI PNEUMONIA
     Route: 048
     Dates: start: 20110117
  2. KALETRA [Suspect]
     Indication: PRODUCT USED FOR UNKNOWN INDICATION
     Route: 048
     Dates: start: 20110121
  3. COTRIM [Concomitant]
     Indication: PROPHYLAXIS

REACTIONS (1)
  - NERVOUS SYSTEM DISORDER [None]
